FAERS Safety Report 18289389 (Version 5)
Quarter: 2021Q1

REPORT INFORMATION
  Report Type: Report from Study
  Country: GB (occurrence: GB)
  Receive Date: 20200921
  Receipt Date: 20210218
  Transmission Date: 20210419
  Serious: Yes (Other)
  Sender: FDA-Public Use
  Company Number: NVSC2019GB011865

PATIENT
  Age: 77 Year
  Sex: Female

DRUGS (10)
  1. MOVICOL [Concomitant]
     Active Substance: POLYETHYLENE GLYCOL 3350\POTASSIUM CHLORIDE\SODIUM BICARBONATE\SODIUM CHLORIDE
     Indication: PROPHYLAXIS
     Dosage: UNK
     Route: 065
     Dates: start: 20191205
  2. KISQALI [Suspect]
     Active Substance: RIBOCICLIB
     Dosage: 200 UNK
     Route: 048
     Dates: start: 20200619
  3. KISQALI [Suspect]
     Active Substance: RIBOCICLIB
     Dosage: 600 OT
     Route: 048
     Dates: start: 20190819, end: 20190904
  4. KISQALI [Suspect]
     Active Substance: RIBOCICLIB
     Dosage: 400 OT
     Route: 048
     Dates: start: 20191121, end: 20200514
  5. KISQALI [Suspect]
     Active Substance: RIBOCICLIB
     Dosage: 200 OT
     Route: 048
     Dates: start: 20200515
  6. OMEPRAZOLE. [Concomitant]
     Active Substance: OMEPRAZOLE
     Indication: REFLUX GASTRITIS
     Dosage: UNK
     Route: 065
     Dates: start: 2018
  7. KISQALI [Suspect]
     Active Substance: RIBOCICLIB
     Dosage: 400 OT
     Route: 048
     Dates: start: 20191231, end: 20200329
  8. KISQALI [Suspect]
     Active Substance: RIBOCICLIB
     Indication: BREAST CANCER METASTATIC
     Dosage: 600 MG, QD (200 MG FILM COATED TABLETS) ONCE DAILY FOR 21 CONSECUTIVE DAYS)
     Route: 048
  9. VITAMIN D [Concomitant]
     Active Substance: VITAMIN D NOS
     Indication: IMMUNE SYSTEM DISORDER
     Dosage: UNK
     Route: 065
     Dates: start: 20200117
  10. SENNA [Concomitant]
     Active Substance: SENNA LEAF\SENNOSIDES\SENNOSIDES A AND B
     Indication: CONSTIPATION
     Dosage: UNK
     Route: 065
     Dates: start: 20191118

REACTIONS (45)
  - Acute kidney injury [Recovered/Resolved]
  - Syncope [Recovered/Resolved]
  - Palpitations [Recovered/Resolved]
  - Presyncope [Recovered/Resolved]
  - Headache [Recovered/Resolved]
  - Vomiting [Recovering/Resolving]
  - Blood alkaline phosphatase increased [Recovered/Resolved]
  - Headache [Recovered/Resolved]
  - Alanine aminotransferase increased [Recovered/Resolved]
  - Hypoglycaemia [Recovering/Resolving]
  - Blood calcium decreased [Recovered/Resolved]
  - Hyperkalaemia [Recovered/Resolved]
  - Chronic kidney disease [Recovering/Resolving]
  - Glomerular filtration rate decreased [Not Recovered/Not Resolved]
  - Hypoalbuminaemia [Recovered/Resolved]
  - Anaemia [Recovered/Resolved]
  - Lymphocyte count decreased [Not Recovered/Not Resolved]
  - Back pain [Not Recovered/Not Resolved]
  - Hypomagnesaemia [Recovered/Resolved]
  - Hypomagnesaemia [Recovered/Resolved]
  - Nasal congestion [Recovered/Resolved]
  - Nausea [Recovered/Resolved]
  - Hypoglycaemia [Recovered/Resolved]
  - Hypoglycaemia [Recovered/Resolved]
  - Hypomagnesaemia [Recovered/Resolved]
  - Blood alkaline phosphatase increased [Recovered/Resolved]
  - Alanine aminotransferase increased [Recovered/Resolved]
  - Injection site bruising [Not Recovered/Not Resolved]
  - Hypomagnesaemia [Recovered/Resolved]
  - Epistaxis [Recovered/Resolved]
  - Fatigue [Recovered/Resolved]
  - Blood creatinine increased [Recovered/Resolved]
  - White blood cell count decreased [Recovered/Resolved]
  - Hypoglycaemia [Recovered/Resolved]
  - Neutropenia [Recovered/Resolved]
  - Neutropenia [Recovered/Resolved]
  - Hypomagnesaemia [Recovered/Resolved]
  - Anaemia [Not Recovered/Not Resolved]
  - Vomiting [Recovered/Resolved]
  - Nausea [Recovered/Resolved]
  - Blood creatinine increased [Not Recovered/Not Resolved]
  - Hypocalcaemia [Recovered/Resolved]
  - Haemoglobin decreased [Not Recovered/Not Resolved]
  - Hypomagnesaemia [Recovered/Resolved]
  - Hypomagnesaemia [Not Recovered/Not Resolved]

NARRATIVE: CASE EVENT DATE: 20190724
